FAERS Safety Report 6681149-X (Version None)
Quarter: 2010Q2

REPORT INFORMATION
  Report Type: 
  Country: None (occurrence: None)
  Receive Date: 20100414
  Receipt Date: 20100408
  Transmission Date: 20101027
  Serious: Yes (Hospitalization)
  Sender: FDA-Public Use
  Company Number: FR-ROCHE-696535

PATIENT
  Sex: Male

DRUGS (17)
  1. AVASTIN [Suspect]
     Dosage: NO REACTION ON EXPOSURE TO DRUG
     Route: 042
     Dates: start: 20080101, end: 20080701
  2. AVASTIN [Suspect]
     Route: 042
     Dates: start: 20090525, end: 20091005
  3. CAMPTOSAR [Suspect]
     Route: 042
     Dates: start: 20090525, end: 20091005
  4. FLUOROURACIL [Suspect]
     Route: 042
     Dates: start: 20090525, end: 20091005
  5. LEUCOVORIN CALCIUM [Suspect]
     Route: 042
     Dates: start: 20090525, end: 20091005
  6. SOLU-MEDROL [Suspect]
     Route: 042
     Dates: start: 20090525, end: 20091005
  7. ZOPHREN [Suspect]
     Indication: DRUG USE FOR UNKNOWN INDICATION
     Route: 042
     Dates: start: 20090525, end: 20091005
  8. ATROPINE SULFATE [Suspect]
     Route: 058
     Dates: start: 20090525, end: 20091005
  9. EMEND [Suspect]
     Dosage: 125 MG ON DAY 1 THEN 80 MG FROM DAY 2 TO DAY 3,
     Route: 048
     Dates: start: 20090525, end: 20091005
  10. ZOLPIDEM [Concomitant]
     Dosage: IN EVENING
  11. DEROXAT [Concomitant]
     Dosage: DRUG: DEROXAT 20
  12. DIFFU-K [Concomitant]
     Dosage: TWO DOSES IN THE MORNING, TWO DOSES AT LUNCH TIME AND TWO DOSES IN THE EVENING
  13. ACETAMINOPHEN [Concomitant]
     Dosage: DRUG: PARALYOC 500
  14. VOGALENE LYOC [Concomitant]
  15. DEBRIDAT [Concomitant]
     Dosage: 2 SACHETS THRICE DAILY
  16. CREON [Concomitant]
     Dosage: CREON 25000: TWO DOSES DAILY
  17. IMODIUM [Concomitant]
     Dosage: 3 DOSES DAILY

REACTIONS (1)
  - HEPATITIS CHOLESTATIC [None]
